FAERS Safety Report 9555126 (Version 3)
Quarter: 2016Q2

REPORT INFORMATION
  Report Type: Spontaneous
  Country: US (occurrence: US)
  Receive Date: 20130815
  Receipt Date: 20160406
  Transmission Date: 20160815
  Serious: Yes (Hospitalization, Other)
  Sender: FDA-Public Use
  Company Number: ADR-2012-02307

PATIENT
  Age: 54 Year
  Sex: Female

DRUGS (14)
  1. TRANSDERM SCOP [Suspect]
     Active Substance: SCOPOLAMINE
     Dosage: 1.5MG PT72 AS NEEDED
  2. ROBAXIN [Suspect]
     Active Substance: METHOCARBAMOL
     Indication: MUSCLE SPASMS
     Dosage: 500MG TWICE DAILY AS NEEDED FOR SPASMS
  3. VESICARE [Suspect]
     Active Substance: SOLIFENACIN SUCCINATE
     Dosage: 5MG TABS
  4. NASONEX [Suspect]
     Active Substance: MOMETASONE FUROATE
     Dosage: 50MCG/ACT SUSP
  5. SYMBICORT [Suspect]
     Active Substance: BUDESONIDE\FORMOTEROL FUMARATE DIHYDRATE
     Dosage: 160-4.5MCG/ACT AERO
  6. IMITREX [Suspect]
     Active Substance: SUMATRIPTAN SUCCINATE
     Dosage: 20MG/ACT SOLN
  7. FLECTOR [Suspect]
     Active Substance: DICLOFENAC EPOLAMINE
     Indication: PAIN
     Dosage: 1.3% PATCH TO LEFT KNEE FOR PAIN FLARE UP EVERY 12 HOURS
  8. FLEXERIL [Suspect]
     Active Substance: CYCLOBENZAPRINE HYDROCHLORIDE
     Indication: MUSCLE SPASMS
     Dosage: 10MG TABS AS NEEDED FOR SPASMS
  9. COMPOUNDED BACLOFEN [Suspect]
     Active Substance: BACLOFEN
  10. NEUROTIN [Suspect]
     Active Substance: GABAPENTIN
     Dosage: 400MG 3 TIMES DAILY
  11. ALBUTEROL. [Suspect]
     Active Substance: ALBUTEROL
     Dosage: 90MCG/ACT AERS
  12. LEXAPRO [Suspect]
     Active Substance: ESCITALOPRAM OXALATE
     Dosage: 1.5 TABS DAILY
  13. MEDROL [Suspect]
     Active Substance: METHYLPREDNISOLONE
     Dosage: 4MG TABS - USE AS DIRECTED
  14. LORTAB [Suspect]
     Active Substance: ACETAMINOPHEN\HYDROCODONE BITARTRATE
     Indication: PAIN
     Dosage: 7.5-500MG TABS; 1 TAB 3-4 TIMES DAILY AS NEEDED FOR PAIN

REACTIONS (7)
  - Arthritis [Recovered/Resolved]
  - Unevaluable event [Recovered/Resolved]
  - Device defective [None]
  - Decreased activity [Recovered/Resolved]
  - No therapeutic response [Recovered/Resolved]
  - Arthralgia [Recovered/Resolved]
  - Pain [Recovered/Resolved]
